FAERS Safety Report 6829477-9 (Version None)
Quarter: 2010Q3

REPORT INFORMATION
  Report Type: 
  Country: None (occurrence: None)
  Receive Date: 20100709
  Receipt Date: 20070310
  Transmission Date: 20110219
  Serious: No
  Sender: FDA-Public Use
  Company Number: US-PFIZER INC-2007019926

PATIENT
  Sex: Male
  Weight: 84.82 kg

DRUGS (3)
  1. CHANTIX [Suspect]
     Indication: SMOKING CESSATION THERAPY
     Dates: start: 20070301
  2. VYTORIN [Concomitant]
     Indication: BLOOD CHOLESTEROL
  3. VESICARE [Concomitant]

REACTIONS (1)
  - POLLAKIURIA [None]
